FAERS Safety Report 8433473-8 (Version None)
Quarter: 2012Q2

REPORT INFORMATION
  Report Type: 
  Country: None (occurrence: None)
  Receive Date: 20120613
  Receipt Date: 20120604
  Transmission Date: 20120825
  Serious: Yes (Other)
  Sender: FDA-Public Use
  Company Number: US-ASTRAZENECA-2012SE37487

PATIENT
  Age: 44 Year
  Sex: Female

DRUGS (2)
  1. A LOT OF DIFFERENT DRUGS [Concomitant]
  2. SEROQUEL XR [Suspect]
     Route: 048

REACTIONS (1)
  - BREAST CANCER FEMALE [None]
